FAERS Safety Report 7323981-5 (Version None)
Quarter: 2011Q1

REPORT INFORMATION
  Report Type: 
  Country: None (occurrence: None)
  Receive Date: 20110301
  Receipt Date: 20110225
  Transmission Date: 20110831
  Serious: Yes (Death)
  Sender: FDA-Public Use
  Company Number: US-BRISTOL-MYERS SQUIBB COMPANY-15577596

PATIENT

DRUGS (3)
  1. LAMIVUDINE [Suspect]
     Route: 064
  2. NEVIRAPINE [Suspect]
     Route: 064
  3. STAVUDINE [Suspect]
     Route: 064

REACTIONS (1)
  - STILLBIRTH [None]
